FAERS Safety Report 13326734 (Version 6)
Quarter: 2017Q4

REPORT INFORMATION
  Report Type: Spontaneous
  Country: US (occurrence: US)
  Receive Date: 20170312
  Receipt Date: 20171211
  Transmission Date: 20180320
  Serious: Yes (Other)
  Sender: FDA-Public Use
  Company Number: PHEH2017US007364

PATIENT
  Age: 29 Year
  Sex: Female
  Weight: 122.9 kg

DRUGS (3)
  1. ZOFRAN [Suspect]
     Active Substance: ONDANSETRON HYDROCHLORIDE
     Indication: PRODUCT USED FOR UNKNOWN INDICATION
     Route: 048
  2. ONDANSETRON [Suspect]
     Active Substance: ONDANSETRON
     Indication: VOMITING IN PREGNANCY
     Dosage: 04 MG, Q6H
     Route: 048
     Dates: start: 20131119, end: 20140424
  3. ONDANSETRON [Suspect]
     Active Substance: ONDANSETRON
     Indication: VOMITING IN PREGNANCY
     Dosage: 04 MG, Q6H, PRN
     Route: 042
     Dates: start: 20140424, end: 20140519

REACTIONS (8)
  - Product use in unapproved indication [Unknown]
  - Vaginal haemorrhage [Unknown]
  - Premature rupture of membranes [Unknown]
  - Maternal exposure during pregnancy [Unknown]
  - Abdominal pain [Unknown]
  - Injury [Unknown]
  - Emotional distress [Unknown]
  - Premature delivery [Unknown]

NARRATIVE: CASE EVENT DATE: 20140518
